FAERS Safety Report 5613157-1 (Version None)
Quarter: 2008Q1

REPORT INFORMATION
  Report Type: 
  Country: None (occurrence: None)
  Receive Date: 20080129
  Receipt Date: 20071112
  Transmission Date: 20080703
  Serious: Yes (Death, Life-Threatening)
  Sender: FDA-Public Use
  Company Number: 2007SP003825

PATIENT
  Age: 71 Year
  Sex: Female
  Weight: 74.8435 kg

DRUGS (6)
  1. LUNESTA [Suspect]
     Indication: INSOMNIA
     Dosage: 2 MG; HS; ORAL
     Route: 048
     Dates: start: 20070918, end: 20071026
  2. FOSAMAX [Concomitant]
  3. HYZAAR [Concomitant]
  4. AMLODIPINE BESYLATE [Concomitant]
  5. GABAPENTIN [Concomitant]
  6. MULTI-VITAMIN [Concomitant]

REACTIONS (2)
  - ARTERIOSCLEROSIS [None]
  - LOSS OF CONSCIOUSNESS [None]
